FAERS Safety Report 9557955 (Version 1)
Quarter: 2013Q3

REPORT INFORMATION
  Report Type: Spontaneous
  Country: US (occurrence: US)
  Receive Date: 20130926
  Receipt Date: 20130926
  Transmission Date: 20140515
  Serious: Yes (Death)
  Sender: FDA-Public Use
  Company Number: US-SANOFI-AVENTIS-CERZ-1002899

PATIENT
  Age: 45 Year
  Sex: Male
  Weight: 145 kg

DRUGS (1)
  1. CEREZYME [Suspect]
     Indication: GAUCHER^S DISEASE
     Dosage: DOSE 24 U/KG DOSE:3600 UNIT(S)
     Route: 042
     Dates: start: 200010, end: 20130916

REACTIONS (2)
  - Oncologic complication [Fatal]
  - Treatment failure [Unknown]
